FAERS Safety Report 7893850-0 (Version None)
Quarter: 2011Q4

REPORT INFORMATION
  Report Type: 
  Country: None (occurrence: None)
  Receive Date: 20111104
  Receipt Date: 20111021
  Transmission Date: 20120403
  Serious: Yes (Hospitalization, Other)
  Sender: FDA-Public Use
  Company Number: PHHY2011US75362

PATIENT
  Age: 11 Year
  Sex: Male

DRUGS (5)
  1. CYCLOSPORINE [Suspect]
     Indication: APLASTIC ANAEMIA
     Dosage: UNK UKN, UNK
  2. SOLU-MEDROL [Concomitant]
     Dosage: 0.5 MG/KG EVERY 65 H
  3. PREDNISONE [Concomitant]
     Dosage: 20 MG, UNK
  4. PREDNISONE [Concomitant]
     Dosage: 5 MG EACH WEEK
  5. ANTI-THYMOCYTE GLOBULIN NOS [Concomitant]
     Dosage: (9 4 DOSES)

REACTIONS (15)
  - HYPERAEMIA [None]
  - CHOLECYSTITIS [None]
  - ASPARTATE AMINOTRANSFERASE INCREASED [None]
  - BLOOD BILIRUBIN INCREASED [None]
  - CONSTIPATION [None]
  - BILIRUBIN CONJUGATED INCREASED [None]
  - OEDEMA [None]
  - ANAEMIA [None]
  - RENAL TUBULAR NECROSIS [None]
  - PANCREATITIS ACUTE [None]
  - RENAL INJURY [None]
  - GALLBLADDER DISORDER [None]
  - ALANINE AMINOTRANSFERASE INCREASED [None]
  - ABDOMINAL PAIN [None]
  - JAUNDICE [None]
